FAERS Safety Report 5464406-4 (Version None)
Quarter: 2007Q3

REPORT INFORMATION
  Report Type: 
  Country: None (occurrence: None)
  Receive Date: 20070921
  Receipt Date: 20070910
  Transmission Date: 20080115
  Serious: Yes (Life-Threatening)
  Sender: FDA-Public Use
  Company Number: GB-BAXTER-2007BH007610

PATIENT
  Age: 50 Year
  Sex: Male

DRUGS (5)
  1. ALBUMIN (HUMAN) [Suspect]
     Indication: POST PROCEDURAL DRAINAGE
     Route: 042
     Dates: start: 20070821, end: 20070821
  2. ACAMPROSATE [Concomitant]
     Indication: HEPATIC CIRRHOSIS
     Route: 048
     Dates: start: 20070821
  3. CHLORDIAZEPOXIDE [Concomitant]
     Indication: ALCOHOL WITHDRAWAL SYNDROME
     Route: 048
     Dates: start: 20070820
  4. PABRINEX [Concomitant]
     Indication: HEPATIC CIRRHOSIS
     Route: 042
     Dates: start: 20070820
  5. SPIRONOLACTONE [Concomitant]
     Route: 048

REACTIONS (3)
  - DYSPNOEA [None]
  - SWOLLEN TONGUE [None]
  - URTICARIA [None]
